FAERS Safety Report 5579256-8 (Version None)
Quarter: 2008Q1

REPORT INFORMATION
  Report Type: 
  Country: None (occurrence: None)
  Receive Date: 20080102
  Receipt Date: 20071220
  Transmission Date: 20080703
  Serious: Yes (Hospitalization)
  Sender: FDA-Public Use
  Company Number: BE-ELI_LILLY_AND_COMPANY-BE200710004138

PATIENT
  Sex: Female

DRUGS (23)
  1. PEMETREXED [Suspect]
     Indication: NON-SMALL CELL LUNG CANCER
     Dosage: 872 MG, DAY 1 OF CYCLE
     Route: 042
     Dates: start: 20070206
  2. PEMETREXED [Suspect]
     Dosage: 855 MG, DAY 1 OF CYCLE
     Dates: start: 20070227
  3. PEMETREXED [Suspect]
     Dosage: 861 MG, DAY 1 OF CYCLE
     Dates: start: 20070320
  4. PEMETREXED [Suspect]
     Dosage: 882 MG, DAY 1 OF CYCLE
     Dates: start: 20070417
  5. PEMETREXED [Suspect]
     Dosage: 865 MG, DAY 1 OF CYCLE
     Dates: start: 20070508
  6. CISPLATIN [Suspect]
     Indication: NON-SMALL CELL LUNG CANCER
     Dosage: 131 MG, DAY 1 OF CYCLE
     Route: 042
     Dates: start: 20070206
  7. CISPLATIN [Suspect]
     Dosage: 128 MG, DAY 1 OF CYCLE
     Dates: start: 20070227
  8. CISPLATIN [Suspect]
     Dosage: 129 MG, DAY 1 OF CYCLE
     Dates: start: 20070320
  9. RADIATION [Suspect]
     Indication: NON-SMALL CELL LUNG CANCER
     Dosage: 10 GY
     Dates: start: 20070416, end: 20070429
  10. RADIATION [Suspect]
     Dosage: 8 GY
     Dates: start: 20070430, end: 20070506
  11. RADIATION [Suspect]
     Dosage: 10 GY
     Dates: start: 20070507, end: 20070513
  12. RADIATION [Suspect]
     Dosage: 6 GY
     Dates: start: 20070514, end: 20070520
  13. RADIATION [Suspect]
     Dosage: 10 GY
     Dates: start: 20070521, end: 20070527
  14. RADIATION [Suspect]
     Dosage: 6 GY
     Dates: start: 20070528, end: 20070531
  15. MEDROL [Concomitant]
     Indication: INFECTION
     Dosage: 16 MG, UNK
     Route: 048
  16. DAFALGAN [Concomitant]
     Indication: PAIN
     Dosage: 4 G, UNK
     Route: 048
  17. CONTRAMAL [Concomitant]
     Indication: PAIN
     Dosage: 200 MG, UNK
     Route: 048
  18. RANITIDINE HCL [Concomitant]
     Indication: PROPHYLAXIS
     Dosage: 300 MG, UNK
     Route: 048
  19. DIFLUCAN [Concomitant]
     Indication: CANDIDIASIS
     Dosage: 100 MG, UNK
     Route: 048
     Dates: start: 20070901, end: 20071001
  20. SYMBICORT [Concomitant]
     Indication: COUGH
     Dosage: UNK UNK, AS NEEDED
     Route: 055
  21. FOLIC ACID [Concomitant]
     Indication: PROPHYLAXIS
  22. VITAMIN B-12 [Concomitant]
     Dosage: UNK, UNKNOWN
  23. DEXAMETHASONE TAB [Concomitant]
     Dosage: UNK, UNKNOWN

REACTIONS (4)
  - CHEST PAIN [None]
  - HAEMOPTYSIS [None]
  - LUNG INFECTION [None]
  - SPUTUM PURULENT [None]
